FAERS Safety Report 6903985-4 (Version None)
Quarter: 2010Q3

REPORT INFORMATION
  Report Type: 
  Country: None (occurrence: None)
  Receive Date: 20100804
  Receipt Date: 20100722
  Transmission Date: 20110219
  Serious: Yes (Other)
  Sender: FDA-Public Use
  Company Number: US-RANBAXY-2010US-36276

PATIENT

DRUGS (5)
  1. CALAN [Suspect]
     Indication: ESSENTIAL HYPERTENSION
     Dosage: UNK, UNK
     Route: 048
  2. LOPID [Suspect]
     Indication: ILL-DEFINED DISORDER
     Dosage: 600 MG, BID
     Route: 048
     Dates: end: 19970220
  3. TIAZAC [Suspect]
     Indication: ESSENTIAL HYPERTENSION
     Dosage: 120 MG, DAILY
     Route: 048
     Dates: start: 19961201
  4. IBUPROFEN [Concomitant]
     Indication: PRODUCT USED FOR UNKNOWN INDICATION
     Route: 065
  5. NASACORT [Concomitant]
     Indication: PRODUCT USED FOR UNKNOWN INDICATION
     Route: 065

REACTIONS (10)
  - BLOOD PRESSURE INCREASED [None]
  - CARBOHYDRATE TOLERANCE DECREASED [None]
  - CHEST DISCOMFORT [None]
  - FATIGUE [None]
  - GASTROINTESTINAL DISORDER [None]
  - HYPOAESTHESIA [None]
  - LIVER DISORDER [None]
  - NERVOUSNESS [None]
  - PANCREATIC DISORDER [None]
  - WEIGHT DECREASED [None]
